FAERS Safety Report 14039389 (Version 2)
Quarter: 2017Q4

REPORT INFORMATION
  Report Type: Spontaneous
  Country: US (occurrence: US)
  Receive Date: 20171004
  Receipt Date: 20171212
  Transmission Date: 20180321
  Serious: Yes (Hospitalization, Other)
  Sender: FDA-Public Use
  Company Number: US-VIIV HEALTHCARE LIMITED-US2017GSK152171

PATIENT
  Sex: Female
  Weight: 92.4 kg

DRUGS (6)
  1. ABILIFY [Concomitant]
     Active Substance: ARIPIPRAZOLE
  2. KLONOPIN [Concomitant]
     Active Substance: CLONAZEPAM
  3. WELLBUTRIN [Concomitant]
     Active Substance: BUPROPION HYDROCHLORIDE
  4. LAMICTAL [Concomitant]
     Active Substance: LAMOTRIGINE
  5. DOXEPIN [Concomitant]
     Active Substance: DOXEPIN
  6. TRIUMEQ [Suspect]
     Active Substance: ABACAVIR SULFATE\DOLUTEGRAVIR SODIUM\LAMIVUDINE
     Indication: HIV INFECTION
     Dosage: UNK, QD
     Route: 048
     Dates: start: 20150526, end: 20170905

REACTIONS (15)
  - Pain in extremity [Not Recovered/Not Resolved]
  - Schizophrenia [Unknown]
  - Oropharyngeal pain [Not Recovered/Not Resolved]
  - Mental disorder [Unknown]
  - Myocardial infarction [Unknown]
  - Laryngitis [Not Recovered/Not Resolved]
  - Chest pain [Not Recovered/Not Resolved]
  - Myocardial necrosis marker increased [Unknown]
  - Renal disorder [Unknown]
  - Dyspnoea [Not Recovered/Not Resolved]
  - Sputum increased [Not Recovered/Not Resolved]
  - Pain [Not Recovered/Not Resolved]
  - Rash [Unknown]
  - Fatigue [Not Recovered/Not Resolved]
  - Cough [Unknown]

NARRATIVE: CASE EVENT DATE: 2015
